FAERS Safety Report 9962113 (Version 1)
Quarter: 2014Q1

REPORT INFORMATION
  Report Type: Report from Study
  Country: US (occurrence: US)
  Receive Date: 20140305
  Receipt Date: 20140305
  Transmission Date: 20141002
  Serious: No
  Sender: FDA-Public Use
  Company Number: US-ABBVIE-13P-163-1115775-00

PATIENT
  Sex: Female

DRUGS (2)
  1. HUMIRA [Suspect]
     Indication: PRODUCT USED FOR UNKNOWN INDICATION
     Dosage: 4 SYRINGES ON DAY 1 AND 2
     Route: 058
     Dates: start: 20130626, end: 20130626
  2. HUMIRA [Suspect]
     Dosage: 4 SYRINGES ON DAY 1 AND 2
     Route: 058

REACTIONS (1)
  - Hypertension [Unknown]
